FAERS Safety Report 6841299-1 (Version None)
Quarter: 2010Q3

REPORT INFORMATION
  Report Type: 
  Country: None (occurrence: None)
  Receive Date: 20100714
  Receipt Date: 20070917
  Transmission Date: 20110219
  Serious: No
  Sender: FDA-Public Use
  Company Number: US-PFIZER INC-2007052427

PATIENT
  Sex: Female
  Weight: 80.7 kg

DRUGS (3)
  1. CHANTIX [Suspect]
     Indication: SMOKING CESSATION THERAPY
     Dosage: EVERY DAY
     Dates: start: 20070601
  2. ANASTROZOLE [Suspect]
  3. CYCLOSPORINE [Suspect]

REACTIONS (2)
  - BLOOD CHOLESTEROL INCREASED [None]
  - VOMITING [None]
